FAERS Safety Report 14224149 (Version 1)
Quarter: 2017Q4

REPORT INFORMATION
  Report Type: Spontaneous
  Country: BR (occurrence: BR)
  Receive Date: 20171126
  Receipt Date: 20171126
  Transmission Date: 20180321
  Serious: Yes (Other)
  Sender: FDA-Public Use
  Company Number: PHHY2017BR172350

PATIENT
  Age: 74 Year
  Sex: Female

DRUGS (1)
  1. NILOTINIB [Suspect]
     Active Substance: NILOTINIB
     Indication: PRODUCT USED FOR UNKNOWN INDICATION
     Dosage: 800 MG, QD
     Route: 065
     Dates: start: 2010

REACTIONS (5)
  - Coronary artery insufficiency [Unknown]
  - Mesenteric artery thrombosis [Unknown]
  - Colitis ischaemic [Unknown]
  - Breast cancer [Unknown]
  - Angina pectoris [Unknown]

NARRATIVE: CASE EVENT DATE: 2012
